FAERS Safety Report 5630368-X (Version None)
Quarter: 2008Q1

REPORT INFORMATION
  Report Type: 
  Country: None (occurrence: None)
  Receive Date: 20080219
  Receipt Date: 20080214
  Transmission Date: 20080703
  Serious: Yes (Life-Threatening, Hospitalization)
  Sender: FDA-Public Use
  Company Number: ES-BRISTOL-MYERS SQUIBB COMPANY-14077234

PATIENT
  Age: 61 Year
  Sex: Female

DRUGS (7)
  1. METFORMIN HCL [Suspect]
     Indication: DIABETES MELLITUS
     Route: 048
  2. CAPTOPRIL [Suspect]
     Indication: HYPERTENSION
  3. DICLOFENAC SODIUM [Suspect]
     Indication: ARTHRALGIA
     Route: 048
  4. NAPROXEN SODIUM [Suspect]
     Indication: ARTHRALGIA
     Route: 048
  5. ROFECOXIB [Suspect]
     Indication: ARTHRALGIA
     Route: 048
  6. GLIBENCLAMIDE [Concomitant]
  7. LEVOTHYROXINE SODIUM [Concomitant]

REACTIONS (1)
  - RENAL FAILURE [None]
